FAERS Safety Report 25955488 (Version 1)
Quarter: 2025Q4

REPORT INFORMATION
  Report Type: Spontaneous
  Country: CA (occurrence: CA)
  Receive Date: 20251024
  Receipt Date: 20251024
  Transmission Date: 20260117
  Serious: Yes (Other)
  Sender: BRISTOL-MYERS SQUIBB COMPANY
  Company Number: CA-BRISTOL-MYERS SQUIBB COMPANY-2025-143995

PATIENT
  Age: 1 Day

DRUGS (4)
  1. ATAZANAVIR SULFATE [Suspect]
     Active Substance: ATAZANAVIR SULFATE
     Indication: Product used for unknown indication
  2. ABACAVIR [Concomitant]
     Active Substance: ABACAVIR
     Indication: Product used for unknown indication
  3. AURO-RITONAVIR [Concomitant]
     Indication: Product used for unknown indication
  4. LAMIVUDINE [Concomitant]
     Active Substance: LAMIVUDINE
     Indication: Product used for unknown indication

REACTIONS (3)
  - Alloimmune haemolytic anaemia [Unknown]
  - Premature baby [Unknown]
  - Foetal exposure during pregnancy [Unknown]
